FAERS Safety Report 19604766 (Version 3)
Quarter: 2021Q3

REPORT INFORMATION
  Report Type: Report from Study
  Country: CO (occurrence: CO)
  Receive Date: 20210723
  Receipt Date: 20210910
  Transmission Date: 20211014
  Serious: Yes (Other)
  Sender: FDA-Public Use
  Company Number: CO-REGENERON PHARMACEUTICALS, INC.-2021-55303

PATIENT

DRUGS (6)
  1. ROSUVASTATIN. [Concomitant]
     Active Substance: ROSUVASTATIN
     Indication: PRODUCT USED FOR UNKNOWN INDICATION
  2. SATOREN [Concomitant]
     Indication: HYPERTENSION
     Dosage: 50 MG, QD
     Route: 048
  3. HYDROCHLOROTHIAZIDE. [Concomitant]
     Active Substance: HYDROCHLOROTHIAZIDE
     Indication: HYPERTENSION
     Dosage: 12.5 MG, QD
     Route: 048
  4. PRALUENT [Suspect]
     Active Substance: ALIROCUMAB
     Indication: ISCHAEMIC CARDIOMYOPATHY
  5. PRALUENT [Suspect]
     Active Substance: ALIROCUMAB
     Indication: HYPERCHOLESTEROLAEMIA
     Dosage: 75 MILLIGRAM, QOW
     Route: 058
     Dates: start: 20210510, end: 20210709
  6. PRALUENT [Suspect]
     Active Substance: ALIROCUMAB
     Indication: CORONARY ARTERY DISEASE

REACTIONS (25)
  - Feeling hot [Recovered/Resolved]
  - Fatigue [Recovered/Resolved]
  - Bone pain [Not Recovered/Not Resolved]
  - Application site pain [Not Recovered/Not Resolved]
  - Pruritus [Recovered/Resolved]
  - Urticaria [Recovered/Resolved]
  - Thirst [Recovered/Resolved]
  - Vein rupture [Recovered/Resolved]
  - Asthenia [Recovered/Resolved]
  - Sleep deficit [Not Recovered/Not Resolved]
  - Inflammation [Not Recovered/Not Resolved]
  - Decreased appetite [Recovered/Resolved]
  - Burning sensation [Not Recovered/Not Resolved]
  - Arthralgia [Not Recovered/Not Resolved]
  - Pruritus [Recovered/Resolved]
  - Perihepatic discomfort [Recovered/Resolved]
  - Pyrexia [Recovered/Resolved]
  - Illness [Recovering/Resolving]
  - Malaise [Recovered/Resolved]
  - Contusion [Recovered/Resolved]
  - Headache [Recovered/Resolved]
  - Discomfort [Recovering/Resolving]
  - Hypoaesthesia [Not Recovered/Not Resolved]
  - Tachycardia [Recovered/Resolved]
  - Skin swelling [Recovered/Resolved]

NARRATIVE: CASE EVENT DATE: 2021
